FAERS Safety Report 4495791-8 (Version None)
Quarter: 2004Q4

REPORT INFORMATION
  Report Type: 
  Country: None (occurrence: None)
  Receive Date: 20041104
  Receipt Date: 20041029
  Transmission Date: 20050328
  Serious: Yes (Other)
  Sender: FDA-Public Use
  Company Number: ENTC2004-0209

PATIENT
  Age: 19 Year
  Sex: Male

DRUGS (2)
  1. STALEVO (UNKNOWN)  (LEVODOPA, CARBIDOPA, ENTACAPONE) [Suspect]
     Dosage: 100 AND 150
  2. PARCOPA [Suspect]
     Dosage: 25 MG/100 MG

REACTIONS (3)
  - CEREBRAL HAEMORRHAGE [None]
  - MOTOR DYSFUNCTION [None]
  - SPEECH DISORDER [None]
